FAERS Safety Report 5756269-4 (Version None)
Quarter: 2008Q2

REPORT INFORMATION
  Report Type: 
  Country: None (occurrence: None)
  Receive Date: 20080602
  Receipt Date: 20080521
  Transmission Date: 20081010
  Serious: Yes (Other)
  Sender: FDA-Public Use
  Company Number: GB-PFIZER INC-2008045319

PATIENT
  Age: 13 Year
  Sex: Male

DRUGS (1)
  1. HYDROCORTISONE ACETATE [Suspect]
     Indication: DERMATITIS ATOPIC

REACTIONS (2)
  - CATARACT [None]
  - ENDOPHTHALMITIS [None]
